FAERS Safety Report 7211292-8 (Version None)
Quarter: 2011Q1

REPORT INFORMATION
  Report Type: 
  Country: None (occurrence: None)
  Receive Date: 20110105
  Receipt Date: 20101228
  Transmission Date: 20110831
  Serious: Yes (Hospitalization, Other)
  Sender: FDA-Public Use
  Company Number: PE-ABBOTT-10P-127-0693909-00

PATIENT
  Age: 45 Year
  Sex: Female
  Weight: 62 kg

DRUGS (4)
  1. HUMIRA [Suspect]
     Indication: PSORIASIS
     Route: 058
     Dates: start: 20100601, end: 20101202
  2. HUMIRA [Suspect]
     Indication: PSORIATIC ARTHROPATHY
  3. COTRIM [Concomitant]
     Indication: URINARY TRACT INFECTION
     Route: 048
     Dates: start: 20101112, end: 20101115
  4. CIPROFLOXACIN [Concomitant]
     Indication: URINARY TRACT INFECTION
     Dates: start: 20101112, end: 20101112

REACTIONS (4)
  - DYSPNOEA [None]
  - URINARY TRACT INFECTION [None]
  - MIGRAINE [None]
  - RASH [None]
